FAERS Safety Report 12880449 (Version 2)
Quarter: 2021Q2

REPORT INFORMATION
  Report Type: Spontaneous
  Country: US (occurrence: US)
  Receive Date: 20161025
  Receipt Date: 20210415
  Transmission Date: 20210716
  Serious: No
  Sender: FDA-Public Use
  Company Number: US-BAUSCH-BL-2016-015060

PATIENT
  Sex: Female

DRUGS (1)
  1. ATIVAN [Suspect]
     Active Substance: LORAZEPAM
     Indication: PANIC DISORDER
     Dosage: FOR PAST TEN YEARS
     Route: 048

REACTIONS (3)
  - Product dose omission issue [Unknown]
  - Off label use [Unknown]
  - Therapy interrupted [Unknown]
